FAERS Safety Report 8105192-9 (Version None)
Quarter: 2012Q1

REPORT INFORMATION
  Report Type: 
  Country: None (occurrence: None)
  Receive Date: 20120201
  Receipt Date: 20120118
  Transmission Date: 20120608
  Serious: Yes (Death)
  Sender: FDA-Public Use
  Company Number: TR-MEDIMMUNE-MEDI-0014661

PATIENT
  Sex: Female
  Weight: 3 kg

DRUGS (2)
  1. SYNAGIS [Suspect]
     Dates: start: 20120104, end: 20120104
  2. SYNAGIS [Suspect]
     Indication: HEART DISEASE CONGENITAL
     Dates: start: 20111221, end: 20111221

REACTIONS (1)
  - HEART DISEASE CONGENITAL [None]
